FAERS Safety Report 14149632 (Version 4)
Quarter: 2018Q1

REPORT INFORMATION
  Report Type: Spontaneous
  Country: JP (occurrence: JP)
  Receive Date: 20171101
  Receipt Date: 20180110
  Transmission Date: 20180508
  Serious: Yes (Other)
  Sender: FDA-Public Use
  Company Number: JP-PFIZER INC-2017465869

PATIENT
  Age: 56 Year
  Sex: Male

DRUGS (1)
  1. TORISEL [Suspect]
     Active Substance: TEMSIROLIMUS
     Indication: RENAL CELL CARCINOMA
     Dosage: 25 MG, DAILY
     Route: 042
     Dates: start: 201710, end: 201710

REACTIONS (4)
  - Condition aggravated [Not Recovered/Not Resolved]
  - Cholecystitis [Recovered/Resolved]
  - Diabetes mellitus [Not Recovered/Not Resolved]
  - Fatigue [Recovered/Resolved]

NARRATIVE: CASE EVENT DATE: 201710
